FAERS Safety Report 5610436-9 (Version None)
Quarter: 2008Q1

REPORT INFORMATION
  Report Type: 
  Country: None (occurrence: None)
  Receive Date: 20080128
  Receipt Date: 20080118
  Transmission Date: 20080703
  Serious: Yes (Death)
  Sender: FDA-Public Use
  Company Number: OPER20080008

PATIENT
  Age: 37 Year
  Sex: Male

DRUGS (4)
  1. OXYMORPHONE HCL [Suspect]
     Dosage: PER ORAL
     Route: 048
     Dates: start: 20060101, end: 20060101
  2. OXYCODONE HCL [Suspect]
     Dosage: PER ORAL
     Route: 048
     Dates: end: 20060101
  3. METHADONE HCL [Suspect]
     Dosage: PER ORAL
     Route: 048
     Dates: end: 20060101
  4. BENZODIAZEPINE [Suspect]
     Dosage: PER ORAL
     Route: 048
     Dates: end: 20060101

REACTIONS (1)
  - DEATH [None]
